FAERS Safety Report 8411486-X (Version None)
Quarter: 2012Q2

REPORT INFORMATION
  Report Type: 
  Country: None (occurrence: None)
  Receive Date: 20120531
  Receipt Date: 20120531
  Transmission Date: 20120825
  Serious: Yes (Death)
  Sender: FDA-Public Use
  Company Number: None

PATIENT
  Sex: Male

DRUGS (2)
  1. PRADAXA [Suspect]
     Indication: ATRIAL FIBRILLATION
     Dosage: 150 MG TWICE A DAY 75 MG TWICE A DAY
     Dates: start: 20111101
  2. PRADAXA [Suspect]
     Indication: ATRIAL FIBRILLATION
     Dosage: 150 MG TWICE A DAY 75 MG TWICE A DAY
     Dates: start: 20110401

REACTIONS (9)
  - BRONCHOPNEUMONIA [None]
  - GINGIVAL BLEEDING [None]
  - TRANSFUSION REACTION [None]
  - INTESTINAL HAEMORRHAGE [None]
  - HEPATIC CIRRHOSIS [None]
  - BLOOD URINE PRESENT [None]
  - SKIN HAEMORRHAGE [None]
  - RECTAL HAEMORRHAGE [None]
  - PULMONARY EMBOLISM [None]
